FAERS Safety Report 21536737 (Version 1)
Quarter: 2022Q4

REPORT INFORMATION
  Report Type: Spontaneous
  Country: US (occurrence: None)
  Receive Date: 20221101
  Receipt Date: 20221101
  Transmission Date: 20230113
  Serious: Yes (Disabling)
  Sender: FDA-Public Use
  Company Number: None

PATIENT
  Age: 43 Year
  Sex: Female
  Weight: 65.7 kg

DRUGS (1)
  1. HYALURONIC ACID SODIUM SALT 0.5% / NIACINAMIDE 4% / TRETINOIN 0.025% [Suspect]
     Active Substance: HYALURONIC ACID\NIACINAMIDE\TRETINOIN
     Indication: Vulvovaginal dryness
     Dosage: OTHER QUANTITY : 1 SUPPOSITORY(IES);?OTHER FREQUENCY : EVERY THREE DAYS;?
     Route: 067
     Dates: start: 20221020, end: 20221025

REACTIONS (1)
  - Vulvovaginal mycotic infection [None]

NARRATIVE: CASE EVENT DATE: 20221025
